FAERS Safety Report 19882079 (Version 1)
Quarter: 2021Q3

REPORT INFORMATION
  Report Type: Spontaneous
  Country: US (occurrence: US)
  Receive Date: 20210924
  Receipt Date: 20210924
  Transmission Date: 20211014
  Serious: No
  Sender: FDA-Public Use
  Company Number: US-BAUSCH-BL-2021-029809

PATIENT
  Sex: Female
  Weight: 54.48 kg

DRUGS (2)
  1. LACRISERT [Suspect]
     Active Substance: HYDROXYPROPYL CELLULOSE
     Indication: DRY EYE
     Dosage: NOW USING IT ONCE IN 7 DAYS
     Route: 047
  2. LACRISERT [Suspect]
     Active Substance: HYDROXYPROPYL CELLULOSE
     Indication: SJOGREN^S SYNDROME
     Dosage: INTIALLY PATIENT USED TO ADMINISTER 1 INSERT FOR 24 HOURS, NOW  USING IT ONCE IN 7 DAYS
     Route: 047

REACTIONS (3)
  - Malaise [Unknown]
  - Intentional product use issue [Unknown]
  - Product availability issue [Unknown]
